FAERS Safety Report 7459442-2 (Version None)
Quarter: 2011Q2

REPORT INFORMATION
  Report Type: 
  Country: None (occurrence: None)
  Receive Date: 20110505
  Receipt Date: 20110427
  Transmission Date: 20111010
  Serious: Yes (Death)
  Sender: FDA-Public Use
  Company Number: FR-JNJFOC-20110500763

PATIENT
  Sex: Female

DRUGS (11)
  1. HEXAQUINE [Suspect]
     Indication: PRODUCT USED FOR UNKNOWN INDICATION
     Route: 048
  2. FERROUS SULFATE TAB [Suspect]
     Indication: PRODUCT USED FOR UNKNOWN INDICATION
     Route: 048
  3. METHYLPREDNISOLONE [Suspect]
     Indication: PRODUCT USED FOR UNKNOWN INDICATION
     Route: 048
  4. PRIMPERAN TAB [Suspect]
     Indication: PRODUCT USED FOR UNKNOWN INDICATION
     Route: 048
  5. ACETAMINOPHEN AND TRAMADOL HCL [Suspect]
     Indication: PRODUCT USED FOR UNKNOWN INDICATION
     Route: 048
  6. EPIRUBICINE [Suspect]
     Indication: BREAST CANCER
     Route: 042
  7. ZOPHREN [Suspect]
     Indication: PRODUCT USED FOR UNKNOWN INDICATION
     Route: 042
  8. ENDOXAN [Suspect]
     Indication: BREAST CANCER
     Route: 042
  9. TAXOTERE [Suspect]
     Indication: BREAST CANCER
     Route: 042
  10. FLUOROURACIL [Suspect]
     Indication: BREAST CANCER
     Route: 042
  11. SOLU-MEDROL [Concomitant]
     Route: 065

REACTIONS (1)
  - LUNG DISORDER [None]
